FAERS Safety Report 4972794-8 (Version None)
Quarter: 2006Q2

REPORT INFORMATION
  Report Type: 
  Country: None (occurrence: None)
  Receive Date: 20060414
  Receipt Date: 20060405
  Transmission Date: 20061013
  Serious: Yes (Life-Threatening, Hospitalization, Other)
  Sender: FDA-Public Use
  Company Number: FR-BRISTOL-MYERS SQUIBB COMPANY-13341821

PATIENT
  Age: 53 Year
  Sex: Male

DRUGS (3)
  1. GLUCOPHAGE [Suspect]
     Indication: DIABETES MELLITUS
     Route: 048
     Dates: start: 20020816, end: 20060201
  2. LASILIX [Concomitant]
     Route: 048
  3. AVLOCARDYL [Concomitant]
     Dosage: ONE DOSAGE FORM = 40 MG
     Route: 048

REACTIONS (14)
  - BLOOD SODIUM DECREASED [None]
  - BLOOD UREA DECREASED [None]
  - COMA [None]
  - DIARRHOEA [None]
  - HEPATOMEGALY [None]
  - HYPOTENSION [None]
  - INTERNATIONAL NORMALISED RATIO INCREASED [None]
  - KLEBSIELLA SEPSIS [None]
  - LACTIC ACIDOSIS [None]
  - METABOLIC ACIDOSIS [None]
  - PLEURAL EFFUSION [None]
  - PNEUMOTHORAX [None]
  - PROTHROMBIN LEVEL INCREASED [None]
  - SHOCK [None]
